FAERS Safety Report 15656650 (Version 4)
Quarter: 2019Q1

REPORT INFORMATION
  Report Type: Report from Study
  Country: ZA (occurrence: ZA)
  Receive Date: 20181126
  Receipt Date: 20190211
  Transmission Date: 20190417
  Serious: Yes (Life-Threatening)
  Sender: FDA-Public Use
  Company Number: ZA-SA-2018SA305988

PATIENT
  Age: 62 Year
  Sex: Male

DRUGS (4)
  1. TOUJEO [Suspect]
     Active Substance: INSULIN GLARGINE
     Indication: TYPE 2 DIABETES MELLITUS
     Dosage: BEDTIME- 80 IU, QD
     Dates: start: 20181101, end: 20181114
  2. DISPRIN [Concomitant]
     Active Substance: ASPIRIN
     Dosage: BEFORE BREAKFAST- 100 MG, QD
     Dates: start: 20150818
  3. ADCO-SIMVASTATIN [Concomitant]
     Active Substance: SIMVASTATIN
     Dosage: BEDTIME- 10 MG, QD
     Dates: start: 20150818
  4. NO STUDY DRUG GIVEN [Suspect]
     Active Substance: UNSPECIFIED INGREDIENT
     Dosage: UNK

REACTIONS (3)
  - Feeling abnormal [Recovering/Resolving]
  - Drug ineffective [Unknown]
  - Hyperglycaemia [Recovered/Resolved]

NARRATIVE: CASE EVENT DATE: 20181101
